FAERS Safety Report 5269819-1 (Version None)
Quarter: 2007Q1

REPORT INFORMATION
  Report Type: 
  Country: None (occurrence: None)
  Receive Date: 20061214
  Receipt Date: 20060623
  Transmission Date: 20070707
  Serious: Yes (Other)
  Sender: FDA-Public Use
  Company Number: 2006054551

PATIENT
  Sex: Male

DRUGS (1)
  1. BEXTRA [Suspect]
     Dosage: 10 MG (10 MG, 1 IN 1 D);
     Dates: start: 20020816

REACTIONS (4)
  - BALANCE DISORDER [None]
  - DIABETES MELLITUS [None]
  - LIMB INJURY [None]
  - MYOCARDIAL INFARCTION [None]
